FAERS Safety Report 5585026-7 (Version None)
Quarter: 2008Q1

REPORT INFORMATION
  Report Type: 
  Country: None (occurrence: None)
  Receive Date: 20080109
  Receipt Date: 20071220
  Transmission Date: 20080703
  Serious: Yes (Hospitalization)
  Sender: FDA-Public Use
  Company Number: FR-BAYER-200718071GPV

PATIENT
  Age: 12 Month
  Sex: Female

DRUGS (6)
  1. CIPROFLOXACIN HCL [Suspect]
     Indication: BRAIN ABSCESS
     Route: 048
     Dates: start: 20071015, end: 20071030
  2. CLAFORAN [Suspect]
     Indication: MENINGITIS
     Route: 042
     Dates: start: 20071006, end: 20071007
  3. CLAFORAN [Suspect]
     Route: 042
     Dates: start: 20071008, end: 20071030
  4. VANCOMYCIN [Concomitant]
     Indication: PYREXIA
     Route: 065
     Dates: start: 20071101
  5. VANCOMYCIN [Concomitant]
     Route: 065
     Dates: start: 20071006, end: 20071008
  6. AMIKLIN [Concomitant]
     Indication: PYREXIA
     Route: 065
     Dates: start: 20071101

REACTIONS (1)
  - AGRANULOCYTOSIS [None]
